FAERS Safety Report 9373188 (Version 2)
Quarter: 2013Q3

REPORT INFORMATION
  Report Type: Spontaneous
  Country: FR (occurrence: FR)
  Receive Date: 20130627
  Receipt Date: 20130910
  Transmission Date: 20140515
  Serious: Yes (Hospitalization)
  Sender: FDA-Public Use
  Company Number: FR-TEVA-415714ISR

PATIENT
  Age: 86 Year
  Sex: Female

DRUGS (6)
  1. FUROSEMIDE [Suspect]
     Indication: CARDIAC FAILURE
     Dosage: 1.5 DOSAGE FORMS DAILY;
     Route: 048
  2. DIFFU K [Concomitant]
     Dosage: 2 DOSAGE FORMS DAILY;
     Route: 048
  3. BISOPROLOL [Concomitant]
     Dosage: 1 DOSAGE FORMS DAILY;
     Route: 048
  4. HEMIGOXINE [Concomitant]
     Dosage: 1 TABLET DAILY; 1 TAB DAILY, 5\7 DAYS
     Route: 048
  5. DISCOTRINE [Concomitant]
     Dosage: 1 DOSAGE FORMS DAILY;
  6. PREVISCAN [Concomitant]
     Dosage: .5 DOSAGE FORMS DAILY;
     Route: 048

REACTIONS (4)
  - Pulmonary oedema [Unknown]
  - Cardiac failure [Recovered/Resolved]
  - Oedema [Recovered/Resolved]
  - Somnolence [Recovered/Resolved]
